FAERS Safety Report 8690809 (Version 3)
Quarter: 2013Q4

REPORT INFORMATION
  Report Type: Spontaneous
  Country: US (occurrence: US)
  Receive Date: 20120728
  Receipt Date: 20131106
  Transmission Date: 20140711
  Serious: Yes (Hospitalization)
  Sender: FDA-Public Use
  Company Number: US-009507513-1207USA009272

PATIENT
  Age: 82 Year
  Sex: Female

DRUGS (1)
  1. COZAAR [Suspect]
     Indication: HYPERTENSION
     Route: 048

REACTIONS (3)
  - Hepatic enzyme increased [Recovered/Resolved]
  - Myalgia [Recovered/Resolved]
  - Gait disturbance [Recovered/Resolved]
